FAERS Safety Report 7340758-5 (Version None)
Quarter: 2011Q1

REPORT INFORMATION
  Report Type: 
  Country: None (occurrence: None)
  Receive Date: 20110309
  Receipt Date: 20110307
  Transmission Date: 20110831
  Serious: Yes (Hospitalization)
  Sender: FDA-Public Use
  Company Number: IT-PFIZER INC-2011049248

PATIENT
  Age: 54 Year
  Sex: Male

DRUGS (1)
  1. TOTALIP [Suspect]
     Indication: ARTERIOSCLEROSIS
     Dosage: 20 MG, UNK
     Route: 048
     Dates: start: 20110204, end: 20110204

REACTIONS (3)
  - OEDEMA [None]
  - THROAT TIGHTNESS [None]
  - LIP OEDEMA [None]
